FAERS Safety Report 23851360 (Version 1)
Quarter: 2024Q2

REPORT INFORMATION
  Report Type: Spontaneous
  Country: TR (occurrence: TR)
  Receive Date: 20240514
  Receipt Date: 20240514
  Transmission Date: 20240716
  Serious: Yes (Hospitalization, Other)
  Sender: FDA-Public Use
  Company Number: TR-TRIS PHARMA, INC.-24TR011494

PATIENT

DRUGS (2)
  1. RISPERIDONE [Suspect]
     Active Substance: RISPERIDONE
     Indication: Bipolar disorder
     Dosage: 6 MILLIGRAM, QD
  2. VALPROIC ACID [Suspect]
     Active Substance: VALPROIC ACID
     Indication: Bipolar disorder
     Dosage: 1000 MILLIGRAM, QD

REACTIONS (2)
  - COVID-19 pneumonia [Recovering/Resolving]
  - Neuroleptic malignant syndrome [Recovering/Resolving]
